FAERS Safety Report 10538106 (Version 2)
Quarter: 2014Q4

REPORT INFORMATION
  Report Type: Spontaneous
  Country: US (occurrence: US)
  Receive Date: 20141023
  Receipt Date: 20141118
  Transmission Date: 20150529
  Serious: Yes (Death, Hospitalization, Other)
  Sender: FDA-Public Use
  Company Number: US-PFIZER INC-2014290209

PATIENT
  Age: 57 Year
  Sex: Female

DRUGS (1)
  1. REVATIO [Suspect]
     Active Substance: SILDENAFIL CITRATE
     Dosage: UNK, 2X/DAY
     Dates: start: 201203

REACTIONS (1)
  - Myocardial infarction [Fatal]
